FAERS Safety Report 7469116-X (Version None)
Quarter: 2011Q2

REPORT INFORMATION
  Report Type: 
  Country: None (occurrence: None)
  Receive Date: 20110510
  Receipt Date: 20110428
  Transmission Date: 20111010
  Serious: Yes (Death, Hospitalization, Other)
  Sender: FDA-Public Use
  Company Number: CA-ELI_LILLY_AND_COMPANY-CA201104007841

PATIENT
  Sex: Female

DRUGS (16)
  1. ZYPREXA [Suspect]
     Dosage: 15 MG, EACH EVENING
  2. CILAZAPRIL [Concomitant]
  3. TRAZODONE HCL [Concomitant]
  4. PREDNISONE [Concomitant]
  5. AVAPRO [Concomitant]
  6. ZYPREXA [Suspect]
     Dosage: 10 MG, EACH EVENING
  7. LITHIUM [Concomitant]
  8. LORAZEPAM [Concomitant]
  9. ALBUTEROL SULFATE AUTOHALER [Concomitant]
  10. FUROSEMIDE [Concomitant]
  11. ALTACE [Concomitant]
  12. RISPERDAL [Concomitant]
  13. NORVASC [Concomitant]
  14. ZYPREXA [Suspect]
     Indication: SCHIZOPHRENIA
     Dosage: 5 MG, EACH EVENING
  15. CELEXA [Concomitant]
  16. HALDOL [Concomitant]

REACTIONS (11)
  - HYPERGLYCAEMIA [None]
  - WEIGHT INCREASED [None]
  - RENAL FAILURE CHRONIC [None]
  - TYPE 2 DIABETES MELLITUS [None]
  - CORONARY ARTERY DISEASE [None]
  - NEPHROTIC SYNDROME [None]
  - HEPATITIS C [None]
  - MYOCARDIAL INFARCTION [None]
  - DEATH [None]
  - BLOOD CHOLESTEROL INCREASED [None]
  - BLOOD TRIGLYCERIDES INCREASED [None]
